FAERS Safety Report 8066033-1 (Version None)
Quarter: 2012Q1

REPORT INFORMATION
  Report Type: 
  Country: None (occurrence: None)
  Receive Date: 20120124
  Receipt Date: 20120113
  Transmission Date: 20120608
  Serious: Yes (Hospitalization)
  Sender: FDA-Public Use
  Company Number: FR-SANOFI-AVENTIS-2012SA002466

PATIENT
  Sex: Female

DRUGS (3)
  1. CLAFORAN [Suspect]
     Route: 042
     Dates: start: 20111021, end: 20111124
  2. RIFADIN [Suspect]
     Route: 042
     Dates: start: 20111021, end: 20111124
  3. CLINDAMYCIN HCL [Suspect]
     Route: 042
     Dates: start: 20111017, end: 20111124

REACTIONS (1)
  - DRUG RASH WITH EOSINOPHILIA AND SYSTEMIC SYMPTOMS [None]
